FAERS Safety Report 15846177 (Version 3)
Quarter: 2019Q2

REPORT INFORMATION
  Report Type: Report from Study
  Country: CO (occurrence: CO)
  Receive Date: 20190120
  Receipt Date: 20190513
  Transmission Date: 20190711
  Serious: Yes (Death, Hospitalization, Other)
  Sender: FDA-Public Use
  Company Number: CO-ASTELLAS-2019US002520

PATIENT
  Age: 74 Year
  Sex: Male

DRUGS (3)
  1. ENZALUTAMIDE [Suspect]
     Active Substance: ENZALUTAMIDE
     Indication: HORMONE-REFRACTORY PROSTATE CANCER
     Dosage: UNK UNK, UNKNOWN FREQ.
     Route: 048
     Dates: start: 20181121
  2. ENZALUTAMIDE [Suspect]
     Active Substance: ENZALUTAMIDE
     Route: 048
  3. ENZALUTAMIDE [Suspect]
     Active Substance: ENZALUTAMIDE
     Route: 048
     Dates: end: 20190413

REACTIONS (13)
  - Renal failure [Not Recovered/Not Resolved]
  - Bile duct obstruction [Not Recovered/Not Resolved]
  - Bile output decreased [Not Recovered/Not Resolved]
  - Malignant neoplasm progression [Not Recovered/Not Resolved]
  - Fatigue [Not Recovered/Not Resolved]
  - Death [Fatal]
  - Hyperhidrosis [Not Recovered/Not Resolved]
  - Somnolence [Not Recovered/Not Resolved]
  - Decreased appetite [Not Recovered/Not Resolved]
  - Blood bilirubin increased [Not Recovered/Not Resolved]
  - Chromaturia [Not Recovered/Not Resolved]
  - Weight decreased [Recovered/Resolved]
  - Dizziness [Not Recovered/Not Resolved]

NARRATIVE: CASE EVENT DATE: 20181215
